FAERS Safety Report 14163758 (Version 1)
Quarter: 2017Q4

REPORT INFORMATION
  Report Type: Spontaneous
  Country: FR (occurrence: FR)
  Receive Date: 20171107
  Receipt Date: 20171107
  Transmission Date: 20180321
  Serious: Yes (Other)
  Sender: FDA-Public Use
  Company Number: FR-MERCK KGAA-2033375

PATIENT
  Sex: Female

DRUGS (1)
  1. NOVOTHYROX [Suspect]
     Active Substance: LEVOTHYROXINE SODIUM
     Indication: HYPOTHYROIDISM
     Route: 048
     Dates: start: 201705, end: 201709

REACTIONS (10)
  - Arrhythmia [Recovering/Resolving]
  - Muscle spasms [Recovering/Resolving]
  - Body temperature fluctuation [Recovering/Resolving]
  - Headache [Recovering/Resolving]
  - Product formulation issue [Recovering/Resolving]
  - Depression [Recovering/Resolving]
  - Gastrointestinal pain [Recovering/Resolving]
  - Suicidal ideation [Recovering/Resolving]
  - Alopecia [Recovering/Resolving]
  - Blood thyroid stimulating hormone increased [Not Recovered/Not Resolved]

NARRATIVE: CASE EVENT DATE: 201705
